FAERS Safety Report 12205031 (Version 1)
Quarter: 2016Q1

REPORT INFORMATION
  Report Type: Spontaneous
  Country: US (occurrence: US)
  Receive Date: 20160323
  Receipt Date: 20160323
  Transmission Date: 20160526
  Serious: Yes (Other)
  Sender: FDA-Public Use
  Company Number: US-MDT-ADR-2015-02460

PATIENT
  Age: 30 Year
  Sex: Male

DRUGS (2)
  1. BACLOFEN, UNKNOWN [Suspect]
     Active Substance: BACLOFEN
     Indication: MUSCLE SPASTICITY
     Dosage: 180 MCG/DAY
     Route: 037
  2. LIORESAL [Suspect]
     Active Substance: BACLOFEN
     Indication: MUSCLE SPASTICITY
     Dosage: 199 MCG/DAY
     Route: 037

REACTIONS (3)
  - Hypertonia [Unknown]
  - Drug dose omission [None]
  - Medical device site ulcer [Unknown]

NARRATIVE: CASE EVENT DATE: 201511
